FAERS Safety Report 22970844 (Version 2)
Quarter: 2023Q4

REPORT INFORMATION
  Report Type: Spontaneous
  Country: NL (occurrence: NL)
  Receive Date: 20230922
  Receipt Date: 20231106
  Transmission Date: 20240110
  Serious: No
  Sender: FDA-Public Use
  Company Number: NL-PFIZER INC-PV202300149483

PATIENT

DRUGS (1)
  1. FRAGMIN [Suspect]
     Active Substance: DALTEPARIN SODIUM
     Dosage: UNK

REACTIONS (1)
  - Needle issue [Unknown]
